FAERS Safety Report 6714349-0 (Version None)
Quarter: 2010Q2

REPORT INFORMATION
  Report Type: 
  Country: None (occurrence: None)
  Receive Date: 20100506
  Receipt Date: 20100426
  Transmission Date: 20101027
  Serious: Yes (Death)
  Sender: FDA-Public Use
  Company Number: US-ELI_LILLY_AND_COMPANY-US200909003491

PATIENT
  Sex: Female
  Weight: 63.6 kg

DRUGS (13)
  1. ZYPREXA [Suspect]
     Indication: DEMENTIA
     Dosage: 2.5 MG, AS NEEDED
     Dates: start: 20100419
  2. ZYPREXA [Suspect]
     Dosage: 5 MG, UNK
     Dates: start: 20080420
  3. ZYPREXA ZYDIS [Suspect]
     Dosage: 10 MG, EACH EVENING
     Route: 048
     Dates: start: 20080422
  4. ZYPREXA ZYDIS [Suspect]
     Dosage: 5 MG, 3/D
     Route: 048
     Dates: start: 20080423, end: 20080424
  5. ZYPREXA ZYDIS [Suspect]
     Dosage: 2.5 MG, 2/D
     Route: 048
     Dates: start: 20080425, end: 20080427
  6. NAMENDA [Concomitant]
     Dosage: 10 MG, 2/D
     Route: 048
  7. NORVASC [Concomitant]
     Dosage: 2.5 MG, EACH EVENING
     Route: 048
  8. ZOCOR [Concomitant]
     Dosage: 20 MG, EACH EVENING
     Route: 048
  9. ARICEPT [Concomitant]
     Dosage: 10 MG, EACH EVENING
     Route: 048
  10. SEROQUEL [Concomitant]
     Indication: AGITATION
     Dosage: 50 MG, 3/D
     Route: 048
  11. SEROQUEL [Concomitant]
     Dosage: 50 MG, AS NEEDED
     Route: 048
  12. TRAZODIL [Concomitant]
     Dosage: 100 MG, EACH EVENING
     Route: 048
     Dates: start: 20080423
  13. RISPERDAL [Concomitant]
     Dosage: 0.25 MG, UNK
     Route: 048
     Dates: start: 20080427

REACTIONS (7)
  - ALANINE AMINOTRANSFERASE INCREASED [None]
  - ASPARTATE AMINOTRANSFERASE INCREASED [None]
  - BLOOD PRESSURE DECREASED [None]
  - DEMENTIA [None]
  - MALNUTRITION [None]
  - MULTI-ORGAN FAILURE [None]
  - OFF LABEL USE [None]
